FAERS Safety Report 17267473 (Version 1)
Quarter: 2020Q1

REPORT INFORMATION
  Report Type: Spontaneous
  Country: CN (occurrence: CN)
  Receive Date: 20200114
  Receipt Date: 20200114
  Transmission Date: 20200409
  Serious: Yes (Other)
  Sender: FDA-Public Use
  Company Number: CN-GLAXOSMITHKLINE-CN2020APC003329

PATIENT

DRUGS (2)
  1. SODIUM CHLORIDE. [Concomitant]
     Active Substance: SODIUM CHLORIDE
     Indication: VEHICLE SOLUTION USE
     Dosage: 2 ML, QD
     Route: 055
     Dates: start: 20200102, end: 20200103
  2. VENTOLIN [Suspect]
     Active Substance: ALBUTEROL SULFATE
     Indication: PNEUMONIA
     Dosage: 5 MG, QD
     Route: 055
     Dates: start: 20200102, end: 20200103

REACTIONS (7)
  - Dyspnoea [Recovering/Resolving]
  - Palpitations [Recovering/Resolving]
  - Tachypnoea [Recovering/Resolving]
  - Heart rate abnormal [Recovering/Resolving]
  - Rales [Recovering/Resolving]
  - Breath sounds abnormal [Recovering/Resolving]
  - Blood pressure increased [Unknown]

NARRATIVE: CASE EVENT DATE: 20200103
